FAERS Safety Report 7085058-6 (Version None)
Quarter: 2010Q4

REPORT INFORMATION
  Report Type: 
  Country: None (occurrence: None)
  Receive Date: 20101105
  Receipt Date: 20101029
  Transmission Date: 20110411
  Serious: Yes (Death, Other)
  Sender: FDA-Public Use
  Company Number: DE-BAYER-201044181GPV

PATIENT
  Age: 74 Year
  Sex: Male
  Weight: 92 kg

DRUGS (5)
  1. SORAFENIB [Suspect]
     Route: 048
     Dates: start: 20091001, end: 20100205
  2. SORAFENIB [Suspect]
     Route: 048
     Dates: start: 20100317, end: 20100412
  3. SORAFENIB [Suspect]
     Route: 048
     Dates: start: 20100511
  4. SORAFENIB [Suspect]
     Route: 048
     Dates: start: 20100604, end: 20100622
  5. SORAFENIB [Suspect]
     Route: 048
     Dates: end: 20100624

REACTIONS (2)
  - GENERAL PHYSICAL HEALTH DETERIORATION [None]
  - NEOPLASM PROGRESSION [None]
